FAERS Safety Report 26099252 (Version 2)
Quarter: 2025Q4

REPORT INFORMATION
  Report Type: Spontaneous
  Country: CA (occurrence: CA)
  Receive Date: 20251128
  Receipt Date: 20251214
  Transmission Date: 20260117
  Serious: Yes (Life-Threatening, Disabling, Other)
  Sender: AUROBINDO
  Company Number: CA-AUROBINDO-AUR-APL-2025-060034

PATIENT
  Age: 33 Year
  Sex: Female

DRUGS (20)
  1. CITALOPRAM [Interacting]
     Active Substance: CITALOPRAM
     Indication: Product used for unknown indication
     Dosage: UNK
     Route: 065
  2. ESCITALOPRAM [Interacting]
     Active Substance: ESCITALOPRAM OXALATE
     Indication: Product used for unknown indication
     Dosage: 10 MILLIGRAM
     Route: 065
  3. ESCITALOPRAM [Interacting]
     Active Substance: ESCITALOPRAM OXALATE
     Dosage: 3 MILLIGRAM, ONCE A DAY
     Route: 065
  4. MORPHINE [Suspect]
     Active Substance: MORPHINE
     Indication: Pain management
     Dosage: UNK
     Route: 065
  5. ULTIVA [Suspect]
     Active Substance: REMIFENTANIL HYDROCHLORIDE
     Indication: Sedative therapy
     Dosage: UNK
  6. ULTIVA [Suspect]
     Active Substance: REMIFENTANIL HYDROCHLORIDE
     Indication: Rhinoplasty
  7. ULTIVA [Suspect]
     Active Substance: REMIFENTANIL HYDROCHLORIDE
     Indication: Analgesic therapy
  8. ACETAMINOPHEN\TRAMADOL HYDROCHLORIDE [Suspect]
     Active Substance: ACETAMINOPHEN\TRAMADOL HYDROCHLORIDE
     Indication: Pain management
     Dosage: UNK
     Route: 065
  9. AMITRIPTYLINE HYDROCHLORIDE [Suspect]
     Active Substance: AMITRIPTYLINE HYDROCHLORIDE
     Indication: Migraine
     Dosage: 25 MILLIGRAM, ONCE A DAY
     Route: 065
  10. PAXLOVID [Suspect]
     Active Substance: NIRMATRELVIR\RITONAVIR
     Indication: Product used for unknown indication
     Dosage: UNK
     Route: 065
  11. VYVANSE [Suspect]
     Active Substance: LISDEXAMFETAMINE DIMESYLATE
     Indication: Attention deficit hyperactivity disorder
     Dosage: 60 MILLIGRAM, ONCE A DAY
     Route: 061
  12. ALLEGRA [Concomitant]
     Active Substance: FEXOFENADINE HYDROCHLORIDE
     Indication: Product used for unknown indication
     Dosage: UNK
     Route: 065
  13. BILASTINE [Concomitant]
     Active Substance: BILASTINE
     Indication: Product used for unknown indication
     Dosage: UNK
     Route: 061
  14. LIVER SUPPORT [Concomitant]
     Indication: Product used for unknown indication
     Dosage: UNK
     Route: 065
  15. COLLAGEN [Concomitant]
     Active Substance: COLLAGEN
     Indication: Product used for unknown indication
     Dosage: UNK
     Route: 065
  16. MAGNESIUM BISGLYCINATE [Concomitant]
     Indication: Product used for unknown indication
     Dosage: UNK
     Route: 065
  17. PEPCID [Concomitant]
     Active Substance: FAMOTIDINE
     Indication: Product used for unknown indication
     Dosage: UNK
     Route: 065
  18. lpha gpc [Concomitant]
     Indication: Product used for unknown indication
     Dosage: UNK
     Route: 065
  19. HERBALS\TURMERIC [Concomitant]
     Active Substance: HERBALS\TURMERIC
     Indication: Product used for unknown indication
     Dosage: UNK
     Route: 065
  20. VITAMIN D3 [Concomitant]
     Active Substance: CHOLECALCIFEROL
     Indication: Product used for unknown indication
     Dosage: UNK
     Route: 065

REACTIONS (57)
  - Abdominal pain [Recovered/Resolved]
  - Acute stress disorder [Recovered/Resolved]
  - Alopecia [Recovered/Resolved]
  - Anorectal disorder [Recovered/Resolved]
  - Anxiety [Recovered/Resolved]
  - Arthralgia [Recovered/Resolved]
  - Attention deficit hyperactivity disorder [Recovered/Resolved]
  - Brain fog [Recovered/Resolved]
  - Breast cancer [Recovered/Resolved]
  - Burning sensation [Recovered/Resolved]
  - Chills [Recovered/Resolved]
  - Cognitive disorder [Recovered/Resolved]
  - Condition aggravated [Recovered/Resolved]
  - Cytokine storm [Recovered/Resolved]
  - Dyspepsia [Recovered/Resolved]
  - Dyspnoea [Recovered/Resolved]
  - Gastrointestinal pain [Recovered/Resolved]
  - Haemorrhage [Recovered/Resolved]
  - Headache [Recovered/Resolved]
  - Hepatic pain [Recovered/Resolved]
  - Hyperhidrosis [Recovered/Resolved]
  - Joint swelling [Recovered/Resolved]
  - Mast cell activation syndrome [Recovered/Resolved]
  - Pain [Recovered/Resolved]
  - Paraesthesia [Recovered/Resolved]
  - Peripheral swelling [Recovered/Resolved]
  - Photosensitivity reaction [Recovered/Resolved]
  - Rash [Recovered/Resolved]
  - Rash erythematous [Recovered/Resolved]
  - Swelling [Recovered/Resolved]
  - Temperature regulation disorder [Recovered/Resolved]
  - Tremor [Recovered/Resolved]
  - Urinary tract pain [Recovered/Resolved]
  - Vaginal disorder [Recovered/Resolved]
  - Product availability issue [Recovered/Resolved]
  - Product colour issue [Recovered/Resolved]
  - Product dosage form issue [Recovered/Resolved]
  - Product formulation issue [Recovered/Resolved]
  - Product shape issue [Recovered/Resolved]
  - Product substitution issue [Recovered/Resolved]
  - Product taste abnormal [Recovered/Resolved]
  - Therapy interrupted [Recovered/Resolved]
  - Suspected product tampering [Recovered/Resolved]
  - Drug interaction [Recovered/Resolved]
  - Withdrawal syndrome [Recovered/Resolved]
  - Drug ineffective [Recovered/Resolved]
  - Blood pressure diastolic increased [Not Recovered/Not Resolved]
  - Blood pressure systolic increased [Not Recovered/Not Resolved]
  - Bradypnoea [Not Recovered/Not Resolved]
  - Delayed recovery from anaesthesia [Not Recovered/Not Resolved]
  - Feeling abnormal [Not Recovered/Not Resolved]
  - Heart rate increased [Not Recovered/Not Resolved]
  - Hypoxia [Not Recovered/Not Resolved]
  - Inadequate analgesia [Not Recovered/Not Resolved]
  - Respiratory depression [Not Recovered/Not Resolved]
  - Sedation complication [Not Recovered/Not Resolved]
  - Transcription medication error [Not Recovered/Not Resolved]
